FAERS Safety Report 9311899 (Version 1)
Quarter: 2013Q2

REPORT INFORMATION
  Report Type: Report from Study
  Country: AU (occurrence: AU)
  Receive Date: 20130528
  Receipt Date: 20130528
  Transmission Date: 20140414
  Serious: Yes (Other)
  Sender: FDA-Public Use
  Company Number: PHHY2013AU043266

PATIENT
  Age: 65 Year
  Sex: Female

DRUGS (8)
  1. ACLASTA [Suspect]
     Indication: OSTEOPOROSIS
     Dosage: 5 MG, UNK
     Route: 042
     Dates: start: 20090324
  2. ACLASTA [Suspect]
     Dosage: 5 MG, UNK
     Route: 042
     Dates: start: 20100305
  3. ACLASTA [Suspect]
     Dosage: 5 MG, UNK
     Route: 042
     Dates: start: 20110322
  4. ACLASTA [Suspect]
     Dosage: 5 MG, UNK
     Route: 042
     Dates: start: 20120427
  5. KARVEZIDE [Concomitant]
     Route: 048
  6. SERETIDE [Concomitant]
  7. SPIRIVA [Concomitant]
  8. OROXINE [Concomitant]

REACTIONS (3)
  - Osteoarthritis [Unknown]
  - Cyst [Unknown]
  - Haemoglobin decreased [Unknown]
